FAERS Safety Report 7334777-2 (Version None)
Quarter: 2011Q1

REPORT INFORMATION
  Report Type: 
  Country: None (occurrence: None)
  Receive Date: 20110307
  Receipt Date: 20110224
  Transmission Date: 20110831
  Serious: Yes (Other)
  Sender: FDA-Public Use
  Company Number: US-JNJFOC-20110208723

PATIENT
  Sex: Female

DRUGS (3)
  1. REMICADE [Suspect]
     Indication: PYODERMA GANGRENOSUM
     Route: 042
  2. CELLCEPT [Concomitant]
  3. CYCLOSPORINE [Concomitant]

REACTIONS (1)
  - BREAST CANCER METASTATIC [None]
